FAERS Safety Report 11852121 (Version 2)
Quarter: 2015Q4

REPORT INFORMATION
  Report Type: Spontaneous
  Country: AU (occurrence: AU)
  Receive Date: 20151218
  Receipt Date: 20151228
  Transmission Date: 20160305
  Serious: Yes (Hospitalization)
  Sender: FDA-Public Use
  Company Number: AU-FERRINGPH-2015FE04767

PATIENT

DRUGS (2)
  1. FIRMAGON [Suspect]
     Active Substance: DEGARELIX ACETATE
     Dosage: 1X120 MG ONCE/SINGLE
     Route: 058
     Dates: start: 20151001
  2. FIRMAGON [Suspect]
     Active Substance: DEGARELIX ACETATE
     Indication: PRODUCT USED FOR UNKNOWN INDICATION
     Dosage: 1X120 MG IN THE RIGHT SHOULDER
     Route: 065
     Dates: start: 20150928, end: 20150928

REACTIONS (9)
  - Inappropriate schedule of drug administration [Recovered/Resolved]
  - Nausea [Recovered/Resolved]
  - Feeling abnormal [Recovered/Resolved]
  - Pyrexia [Recovered/Resolved]
  - Incorrect route of drug administration [Recovered/Resolved]
  - Feeling abnormal [Recovered/Resolved]
  - Palpitations [Recovered/Resolved]
  - Dizziness [Recovered/Resolved]
  - Incorrect route of drug administration [None]

NARRATIVE: CASE EVENT DATE: 20150928
